FAERS Safety Report 8414237-8 (Version None)
Quarter: 2012Q2

REPORT INFORMATION
  Report Type: 
  Country: None (occurrence: None)
  Receive Date: 20120605
  Receipt Date: 20120601
  Transmission Date: 20120825
  Serious: Yes (Other)
  Sender: FDA-Public Use
  Company Number: US-PFIZER INC-2012132714

PATIENT
  Sex: Female
  Weight: 63 kg

DRUGS (7)
  1. PREMARIN [Suspect]
     Indication: HORMONE REPLACEMENT THERAPY
  2. PREMARIN [Suspect]
     Indication: HOT FLUSH
     Dosage: 0.3 MG,DAILY
     Route: 048
     Dates: start: 19720101
  3. LYRICA [Suspect]
     Indication: OSTEOARTHRITIS
  4. EFFEXOR XR [Suspect]
     Indication: SUICIDAL IDEATION
     Dosage: 75 MG,DAILY
     Dates: start: 20120301
  5. LYRICA [Suspect]
     Indication: OSTEOPOROSIS
     Dosage: 150MG (MORNING), 150MG (AFTERNOON) AND 100MG (NIGHT)
     Route: 048
     Dates: start: 20100101
  6. EFFEXOR XR [Suspect]
     Indication: DEPRESSION
  7. VITAMIN B-12 [Concomitant]
     Indication: VITAMIN B12 DEFICIENCY
     Dosage: 1000 IU, 1XWEEK OR 1XMONTH

REACTIONS (2)
  - EXPIRED DRUG ADMINISTERED [None]
  - CEREBROVASCULAR ACCIDENT [None]
